FAERS Safety Report 20964132 (Version 2)
Quarter: 2023Q1

REPORT INFORMATION
  Report Type: Spontaneous
  Country: US (occurrence: US)
  Receive Date: 20220615
  Receipt Date: 20230323
  Transmission Date: 20230417
  Serious: Yes (Life-Threatening, Other)
  Sender: FDA-Public Use
  Company Number: US-PFIZER INC-202200818530

PATIENT
  Age: 60 Year
  Sex: Male

DRUGS (1)
  1. ADENOSINE PHOSPHATE [Suspect]
     Active Substance: ADENOSINE PHOSPHATE
     Indication: Cryotherapy
     Dosage: UNK
     Route: 042

REACTIONS (4)
  - Idiosyncratic drug reaction [Recovering/Resolving]
  - Arteriospasm coronary [Recovering/Resolving]
  - Haemodynamic instability [Recovering/Resolving]
  - Off label use [Unknown]
